FAERS Safety Report 17485019 (Version 2)
Quarter: 2020Q1

REPORT INFORMATION
  Report Type: Spontaneous
  Country: TR (occurrence: TR)
  Receive Date: 20200302
  Receipt Date: 20200318
  Transmission Date: 20200409
  Serious: Yes (Other)
  Sender: FDA-Public Use
  Company Number: TR-SHIRE-TR202006614

PATIENT

DRUGS (3)
  1. CEPROTIN [Suspect]
     Active Substance: PROTEIN C
     Indication: PROPHYLAXIS
     Dosage: 20 MILLIGRAM/KILOGRAM, 2X A WEEK
     Route: 065
  2. HEPARIN [Concomitant]
     Active Substance: HEPARIN SODIUM
     Indication: PRODUCT USED FOR UNKNOWN INDICATION
  3. CEPROTIN [Suspect]
     Active Substance: PROTEIN C
     Dosage: 50 MILLIGRAM/KILOGRAM, 2X A WEEK
     Route: 065

REACTIONS (2)
  - Purpura fulminans [Unknown]
  - Haemorrhage [Recovered/Resolved]
